FAERS Safety Report 6680293-0 (Version None)
Quarter: 2010Q2

REPORT INFORMATION
  Report Type: 
  Country: None (occurrence: None)
  Receive Date: 20100408
  Receipt Date: 20100325
  Transmission Date: 20101027
  Serious: Yes (Hospitalization)
  Sender: FDA-Public Use
  Company Number: 2010-0974

PATIENT
  Age: 73 Year
  Sex: Male

DRUGS (1)
  1. DYSPORT [Suspect]
     Indication: MICTURITION URGENCY
     Dosage: 500 UNITS (500 UNITS, SINGLE CYCLE)
     Dates: start: 20100323, end: 20100323

REACTIONS (1)
  - PLATELET COUNT DECREASED [None]
